FAERS Safety Report 9767702 (Version 1)
Quarter: 2013Q4

REPORT INFORMATION
  Report Type: Spontaneous
  Country: US (occurrence: US)
  Receive Date: 20131217
  Receipt Date: 20131217
  Transmission Date: 20140711
  Serious: Yes (Death, Congenital Anomaly)
  Sender: FDA-Public Use
  Company Number: US-AMGEN-USASP2013086988

PATIENT
  Sex: 0

DRUGS (8)
  1. ENBREL [Suspect]
     Indication: PRODUCT USED FOR UNKNOWN INDICATION
     Dosage: 50 MG, QWK
     Route: 064
     Dates: start: 20050513
  2. ATENOLOL [Concomitant]
     Indication: MIGRAINE
     Dosage: 25 MG, QD
     Route: 064
     Dates: start: 2001
  3. MIRALAX                            /00754501/ [Concomitant]
     Indication: CONSTIPATION
     Dosage: 17 G, QD
     Route: 064
     Dates: start: 200310
  4. FIORICET [Concomitant]
     Indication: MIGRAINE
     Dosage: 1-2 TAB, AS NECESSARY
     Route: 064
     Dates: start: 200708
  5. VITAMIN B12 [Concomitant]
     Indication: NAUSEA
     Dosage: 1 TAB, QD
     Route: 064
     Dates: start: 200611
  6. VITAMIN B12 [Concomitant]
     Indication: VOMITING
  7. UNISOM                             /00334102/ [Concomitant]
     Indication: NAUSEA
     Dosage: UNK UNK, QD
     Route: 064
     Dates: end: 20110609
  8. UNISOM                             /00334102/ [Concomitant]
     Indication: VOMITING

REACTIONS (3)
  - Foetal death [Fatal]
  - Trisomy 15 [Not Recovered/Not Resolved]
  - Trisomy 13 [Not Recovered/Not Resolved]
